FAERS Safety Report 12729965 (Version 1)
Quarter: 2016Q3

REPORT INFORMATION
  Report Type: Report from Study
  Country: MX (occurrence: MX)
  Receive Date: 20160909
  Receipt Date: 20160909
  Transmission Date: 20161109
  Serious: Yes (Hospitalization, Other)
  Sender: FDA-Public Use
  Company Number: MX-BAYER-2016-170936

PATIENT
  Sex: Female

DRUGS (1)
  1. NEXAVAR [Suspect]
     Active Substance: SORAFENIB
     Dosage: UNK
     Dates: start: 20160818

REACTIONS (16)
  - Mouth ulceration [Unknown]
  - Hypersensitivity [Unknown]
  - Vulvovaginal discomfort [Unknown]
  - Proctalgia [Unknown]
  - Blood pressure increased [Unknown]
  - Stomatitis [Unknown]
  - Tonsillitis [Unknown]
  - Pain in extremity [Unknown]
  - Pyrexia [Unknown]
  - Urticaria [Unknown]
  - Vulvovaginal pain [Unknown]
  - Anorectal discomfort [Unknown]
  - Oral pain [Unknown]
  - Palmar-plantar erythrodysaesthesia syndrome [Unknown]
  - Hypersensitivity [Unknown]
  - Anal ulcer [Unknown]

NARRATIVE: CASE EVENT DATE: 201608
